FAERS Safety Report 6932915-4 (Version None)
Quarter: 2010Q3

REPORT INFORMATION
  Report Type: 
  Country: None (occurrence: None)
  Receive Date: 20100819
  Receipt Date: 20010620
  Transmission Date: 20110219
  Serious: Yes (Other)
  Sender: FDA-Public Use
  Company Number: HQ9316705APR2001

PATIENT
  Sex: Male
  Weight: 74 kg

DRUGS (3)
  1. EFFEXOR [Suspect]
     Indication: DEPRESSION
     Route: 048
     Dates: start: 20001211, end: 20010102
  2. EFFEXOR [Suspect]
     Route: 048
     Dates: start: 20010103, end: 20010123
  3. CLOXAZOLAM [Concomitant]
     Route: 048

REACTIONS (2)
  - CEREBRAL ATROPHY [None]
  - SEDATION [None]
